FAERS Safety Report 20201818 (Version 1)
Quarter: 2021Q4

REPORT INFORMATION
  Report Type: Report from Study
  Country: BR (occurrence: BR)
  Receive Date: 20211217
  Receipt Date: 20211217
  Transmission Date: 20220303
  Serious: Yes (Other)
  Sender: FDA-Public Use
  Company Number: BR-TAKEDA-BR201912909

PATIENT
  Sex: Male

DRUGS (4)
  1. HEMO-8R [Suspect]
     Active Substance: ANTIHEMOPHILIC FACTOR, HUMAN RECOMBINANT
     Indication: Factor VIII deficiency
     Dosage: 1.500 INTERNATIONAL UNIT, 4X A WEEK, MONDAYS, WEDNESDAYS, FRIDAYS, SUNDAYS
     Route: 050
     Dates: start: 20040301
  2. HEMO-8R [Suspect]
     Active Substance: ANTIHEMOPHILIC FACTOR, HUMAN RECOMBINANT
     Dosage: 1500 INTERNATIONAL UNIT, 4/WEEK
     Route: 042
     Dates: start: 20040301
  3. FEIBA NF [Concomitant]
     Active Substance: ANTI-INHIBITOR COAGULANT COMPLEX
     Indication: Prophylaxis
  4. COAGULATION FACTOR VII HUMAN [Concomitant]
     Active Substance: COAGULATION FACTOR VII HUMAN
     Indication: Product used for unknown indication

REACTIONS (5)
  - Haemarthrosis [Unknown]
  - Paraesthesia [Recovering/Resolving]
  - Limb injury [Recovering/Resolving]
  - Hypokinesia [Unknown]
  - Atrophy [Recovering/Resolving]
